FAERS Safety Report 7877156-1 (Version None)
Quarter: 2011Q4

REPORT INFORMATION
  Report Type: 
  Country: None (occurrence: None)
  Receive Date: 20111031
  Receipt Date: 20111021
  Transmission Date: 20120403
  Serious: Yes (Hospitalization)
  Sender: FDA-Public Use
  Company Number: US-BAYER-2011-001029

PATIENT
  Age: 35 Year
  Sex: Female
  Weight: 63.492 kg

DRUGS (4)
  1. YAZ [Suspect]
     Indication: MIGRAINE
  2. YAZ [Suspect]
     Indication: CONTRACEPTION
     Dosage: UNK
     Dates: start: 20090501, end: 20091201
  3. FIORINAL [ACETYLSALICYLIC ACID,BUTALBITAL,CAFFEINE,PHENACETIN] [Concomitant]
  4. ZOFRAN [Concomitant]

REACTIONS (8)
  - ANXIETY [None]
  - PULMONARY THROMBOSIS [None]
  - HEART RATE INCREASED [None]
  - PAIN [None]
  - INJURY [None]
  - DYSPNOEA [None]
  - DISABILITY [None]
  - EMOTIONAL DISTRESS [None]
